FAERS Safety Report 22632794 (Version 1)
Quarter: 2023Q2

REPORT INFORMATION
  Report Type: Spontaneous
  Country: US (occurrence: US)
  Receive Date: 20230623
  Receipt Date: 20230623
  Transmission Date: 20230721
  Serious: Yes (Hospitalization, Other)
  Sender: FDA-Public Use
  Company Number: US-009507513-2306USA007745

PATIENT
  Age: 60 Year
  Sex: Female

DRUGS (8)
  1. JANUMET [Suspect]
     Active Substance: METFORMIN HYDROCHLORIDE\SITAGLIPTIN PHOSPHATE
     Indication: Type 2 diabetes mellitus
     Dosage: STRENGTH: 50/1000 MG, 1 TABLET TWICE A DAY
     Route: 048
     Dates: end: 20230528
  2. TIZANIDINE [Concomitant]
     Active Substance: TIZANIDINE
  3. OXYCODONE [Concomitant]
     Active Substance: OXYCODONE
  4. LEXAPRO [Concomitant]
     Active Substance: ESCITALOPRAM OXALATE
  5. ATENOLOL [Concomitant]
     Active Substance: ATENOLOL
  6. SUMATRIPTAN [Concomitant]
     Active Substance: SUMATRIPTAN
  7. PHENERGAN [Concomitant]
     Active Substance: PROMETHAZINE HYDROCHLORIDE
  8. ASPIRIN [Concomitant]
     Active Substance: ASPIRIN

REACTIONS (2)
  - Myocardial infarction [Recovering/Resolving]
  - Diabetic ketoacidosis [Unknown]

NARRATIVE: CASE EVENT DATE: 20230528
